FAERS Safety Report 4318494-9 (Version None)
Quarter: 2004Q1

REPORT INFORMATION
  Report Type: 
  Country: None (occurrence: None)
  Receive Date: 20040316
  Receipt Date: 20040316
  Transmission Date: 20041129
  Serious: Yes (Life-Threatening)
  Sender: FDA-Public Use
  Company Number: None

PATIENT
  Age: 55 Year
  Sex: Female

DRUGS (3)
  1. MEPERIDINE HCL [Suspect]
     Indication: REFLEX SYMPATHETIC DYSTROPHY
     Dosage: 50-75 Q 2-4 HR IV
     Route: 042
     Dates: start: 20031202, end: 20031216
  2. HYDROXYZINE [Concomitant]
  3. DIPHENHYDRAMINE HCL [Concomitant]

REACTIONS (4)
  - BLOOD PRESSURE SYSTOLIC DECREASED [None]
  - CHEST PAIN [None]
  - GRAND MAL CONVULSION [None]
  - HEART RATE INCREASED [None]
